FAERS Safety Report 22049974 (Version 1)
Quarter: 2023Q1

REPORT INFORMATION
  Report Type: Spontaneous
  Country: US (occurrence: US)
  Receive Date: 20230301
  Receipt Date: 20230301
  Transmission Date: 20230417
  Serious: No
  Sender: FDA-Public Use
  Company Number: US-SA-SAC20230228000100

PATIENT
  Age: 57 Year
  Sex: Female

DRUGS (1)
  1. CEREZYME [Suspect]
     Active Substance: IMIGLUCERASE
     Indication: Gaucher^s disease
     Dosage: 3200 U, QOW
     Route: 042
     Dates: start: 20230204

REACTIONS (2)
  - Pain in extremity [Unknown]
  - Bone disorder [Unknown]

NARRATIVE: CASE EVENT DATE: 20230201
